FAERS Safety Report 11098718 (Version 2)
Quarter: 2015Q2

REPORT INFORMATION
  Report Type: Report from Study
  Country: AU (occurrence: AU)
  Receive Date: 20150507
  Receipt Date: 20150520
  Transmission Date: 20150821
  Serious: Yes (Other)
  Sender: FDA-Public Use
  Company Number: PHHY2015AU053429

PATIENT
  Age: 66 Year
  Sex: Male
  Weight: 99 kg

DRUGS (1)
  1. CLOZARIL [Suspect]
     Active Substance: CLOZAPINE
     Indication: SCHIZOPHRENIA
     Route: 065
     Dates: start: 20131128

REACTIONS (23)
  - Blood alkaline phosphatase increased [Recovered/Resolved]
  - Productive cough [Recovering/Resolving]
  - Chest discomfort [Recovering/Resolving]
  - Aspartate aminotransferase increased [Recovered/Resolved]
  - Troponin increased [Recovered/Resolved]
  - Troponin increased [Unknown]
  - Mitral valve incompetence [Unknown]
  - Blood bilirubin increased [Recovered/Resolved]
  - Bilirubin conjugated increased [Unknown]
  - C-reactive protein increased [Unknown]
  - Blood creatine phosphokinase increased [Unknown]
  - Blood glucose increased [Unknown]
  - Blood cholesterol increased [Unknown]
  - Blood glucose increased [Recovered/Resolved]
  - Blood lactate dehydrogenase increased [Recovered/Resolved]
  - Alanine aminotransferase increased [Recovered/Resolved]
  - Anion gap increased [Recovered/Resolved]
  - Lower respiratory tract infection [Recovering/Resolving]
  - Right ventricular systolic pressure increased [Unknown]
  - Blood iron decreased [Unknown]
  - Blood cholesterol increased [Recovered/Resolved]
  - Tricuspid valve incompetence [Unknown]
  - Gamma-glutamyltransferase increased [Recovered/Resolved]

NARRATIVE: CASE EVENT DATE: 20131230
